FAERS Safety Report 8012666-8 (Version None)
Quarter: 2011Q4

REPORT INFORMATION
  Report Type: 
  Country: None (occurrence: None)
  Receive Date: 20111222
  Receipt Date: 20111205
  Transmission Date: 20120403
  Serious: Yes (Hospitalization)
  Sender: FDA-Public Use
  Company Number: 2011SE51603

PATIENT
  Age: 15 Year
  Sex: Female

DRUGS (9)
  1. FOSCARNET [Suspect]
     Indication: CYTOMEGALOVIRUS INFECTION
     Dosage: 80 MG/KG DAILY
     Route: 042
  2. OMEPRAZOLE [Concomitant]
  3. NICARDIPINE HCL [Concomitant]
  4. COTRIM [Concomitant]
  5. VORICONAZOLE [Concomitant]
  6. PHENOXYMETHYLPENICILLIN [Concomitant]
  7. DEFEROXAMINE MESYLATE [Concomitant]
  8. MYCOPHENOLATE MOFETIL [Suspect]
     Indication: GRAFT VERSUS HOST DISEASE
     Route: 048
  9. PREDNISOLONE [Concomitant]

REACTIONS (3)
  - OESOPHAGITIS HAEMORRHAGIC [None]
  - POTENTIATING DRUG INTERACTION [None]
  - OESOPHAGITIS ULCERATIVE [None]
